FAERS Safety Report 4443459-6 (Version None)
Quarter: 2004Q3

REPORT INFORMATION
  Report Type: 
  Country: None (occurrence: None)
  Receive Date: 20040908
  Receipt Date: 20040831
  Transmission Date: 20050211
  Serious: Yes (Hospitalization)
  Sender: FDA-Public Use
  Company Number: PHBS2004CH11624

PATIENT
  Age: 19 Month
  Sex: Female

DRUGS (7)
  1. CYCLOSPORINE [Suspect]
     Indication: NEPHROTIC SYNDROME
     Route: 065
  2. ENALAPRIL [Concomitant]
     Dosage: 0.5 MG/KG/D
  3. INDOMETHACIN [Concomitant]
     Dosage: 1 - 3 MG/KG/D
  4. ALBUMIN (HUMAN) [Concomitant]
  5. FUROSEMIDE [Concomitant]
     Dosage: 10 MG, BID
  6. CO-TRIMOXAZOLE [Concomitant]
     Dosage: 90 MG, BID
  7. L-THYROXIN [Concomitant]
     Dosage: 50 UG, QD

REACTIONS (4)
  - ATRIOVENTRICULAR BLOCK SECOND DEGREE [None]
  - DIARRHOEA HAEMORRHAGIC [None]
  - HORNER'S SYNDROME [None]
  - PYELONEPHRITIS [None]
